FAERS Safety Report 16224927 (Version 2)
Quarter: 2019Q2

REPORT INFORMATION
  Report Type: Spontaneous
  Country: US (occurrence: US)
  Receive Date: 20190422
  Receipt Date: 20190524
  Transmission Date: 20190711
  Serious: Yes (Other)
  Sender: FDA-Public Use
  Company Number: US-INCYTE CORPORATION-2019IN003783

PATIENT

DRUGS (2)
  1. JAKAFI [Suspect]
     Active Substance: RUXOLITINIB
     Dosage: 10 MILLIGRAM, BID
     Route: 048
     Dates: start: 20180410
  2. JAKAFI [Suspect]
     Active Substance: RUXOLITINIB
     Indication: ESSENTIAL THROMBOCYTHAEMIA
     Dosage: 10 MILLIGRAM, BID
     Route: 048
     Dates: start: 20161013

REACTIONS (3)
  - Dyspnoea [Recovered/Resolved]
  - Off label use [Unknown]
  - Lung infection [Recovered/Resolved]

NARRATIVE: CASE EVENT DATE: 20161013
